FAERS Safety Report 6070594-1 (Version None)
Quarter: 2009Q1

REPORT INFORMATION
  Report Type: 
  Country: None (occurrence: None)
  Receive Date: 20090209
  Receipt Date: 20090128
  Transmission Date: 20090719
  Serious: Yes (Hospitalization)
  Sender: FDA-Public Use
  Company Number: JP-PFIZER INC-2009166217

PATIENT

DRUGS (5)
  1. TOPOTECIN [Suspect]
     Indication: NON-SMALL CELL LUNG CANCER
     Dosage: 60 MG/M2
     Dates: start: 20081208
  2. CISPLATIN [Suspect]
  3. LOXONIN [Suspect]
     Route: 048
  4. TAMIFLU [Suspect]
  5. PANALDINE [Suspect]

REACTIONS (1)
  - LIVER DISORDER [None]
